FAERS Safety Report 17805407 (Version 4)
Quarter: 2020Q2

REPORT INFORMATION
  Report Type: Spontaneous
  Country: US (occurrence: US)
  Receive Date: 20200520
  Receipt Date: 20200624
  Transmission Date: 20200714
  Serious: Yes (Other)
  Sender: FDA-Public Use
  Company Number: US-ASTRAZENECA-2020SE63684

PATIENT
  Sex: Male

DRUGS (2)
  1. SYMBICORT [Suspect]
     Active Substance: BUDESONIDE\FORMOTEROL FUMARATE DIHYDRATE
     Dosage: 80/4.5MCG, UNKNOWN UNKNOWN
     Route: 055
  2. COMBIVENT [Concomitant]
     Active Substance: ALBUTEROL SULFATE\IPRATROPIUM BROMIDE
     Indication: ILL-DEFINED DISORDER
     Dosage: TWO TIMES A DAY

REACTIONS (8)
  - Oral discomfort [Unknown]
  - SARS-CoV-2 test negative [Unknown]
  - Device delivery system issue [Unknown]
  - Oral herpes [Unknown]
  - Cheilitis [Unknown]
  - Intentional device misuse [Unknown]
  - Product dose omission [Unknown]
  - Wrong technique in device usage process [Unknown]
